FAERS Safety Report 20229360 (Version 1)
Quarter: 2021Q4

REPORT INFORMATION
  Report Type: Spontaneous
  Country: FR (occurrence: FR)
  Receive Date: 20211225
  Receipt Date: 20211225
  Transmission Date: 20220303
  Serious: Yes (Hospitalization)
  Sender: FDA-Public Use
  Company Number: None

PATIENT
  Age: 66 Year
  Sex: Male
  Weight: 80 kg

DRUGS (3)
  1. MEKINIST [Suspect]
     Active Substance: TRAMETINIB DIMETHYL SULFOXIDE
     Indication: Malignant melanoma
     Dosage: 2 MG, QD
     Route: 048
     Dates: start: 20210721, end: 20211028
  2. TAFINLAR [Suspect]
     Active Substance: DABRAFENIB MESYLATE
     Indication: Malignant melanoma
     Dosage: 300 MG, QD (75MGX4/J)
     Route: 048
     Dates: start: 20210721, end: 20211028
  3. CORDARONE [Suspect]
     Active Substance: AMIODARONE HYDROCHLORIDE
     Indication: Atrial fibrillation
     Dosage: 1000 MG, QW (200MG/J, 5J/SEMAINE)
     Route: 048
     Dates: start: 202007, end: 202104

REACTIONS (1)
  - Hyperthyroidism [Recovered/Resolved]

NARRATIVE: CASE EVENT DATE: 20210825
